FAERS Safety Report 7795994 (Version 2)
Quarter: 2020Q3

REPORT INFORMATION
  Report Type: Other
  Country: CN (occurrence: CN)
  Receive Date: 20110202
  Receipt Date: 20200914
  Transmission Date: 20201103
  Serious: Yes (Hospitalization, Other)
  Sender: FDA-Public Use
  Company Number: CN-ROCHE-756350

PATIENT
  Age: 43 Year
  Sex: Female

DRUGS (1)
  1. CEFTRIAXONE. [Suspect]
     Active Substance: CEFTRIAXONE
     Indication: UPPER RESPIRATORY TRACT INFECTION
     Route: 065
     Dates: start: 200801

REACTIONS (5)
  - Autoimmune haemolytic anaemia [Recovered/Resolved]
  - Intestinal obstruction [Recovered/Resolved]
  - Loss of consciousness [Unknown]
  - Portal vein thrombosis [Recovering/Resolving]
  - Decreased appetite [Unknown]

NARRATIVE: CASE EVENT DATE: 200801
